FAERS Safety Report 14310780 (Version 2)
Quarter: 2017Q4

REPORT INFORMATION
  Report Type: Spontaneous
  Country: JP (occurrence: JP)
  Receive Date: 20171220
  Receipt Date: 20171221
  Transmission Date: 20180321
  Serious: Yes (Other)
  Sender: FDA-Public Use
  Company Number: JP-009507513-1712JPN000029J

PATIENT
  Age: 82 Year
  Sex: Male

DRUGS (1)
  1. KEYTRUDA [Suspect]
     Active Substance: PEMBROLIZUMAB
     Indication: LUNG NEOPLASM MALIGNANT
     Dosage: UNK
     Route: 041
     Dates: start: 2017

REACTIONS (5)
  - Encephalitis [Recovering/Resolving]
  - Psychiatric symptom [Recovering/Resolving]
  - Cognitive disorder [Recovering/Resolving]
  - Secondary adrenocortical insufficiency [Unknown]
  - Hypophysitis [Recovering/Resolving]

NARRATIVE: CASE EVENT DATE: 2017
